FAERS Safety Report 19299291 (Version 2)
Quarter: 2021Q2

REPORT INFORMATION
  Report Type: Report from Study
  Country: JP (occurrence: JP)
  Receive Date: 20210525
  Receipt Date: 20210531
  Transmission Date: 20210717
  Serious: Yes (Death, Other)
  Sender: FDA-Public Use
  Company Number: JP-TAKEDA-2021TUS032912

PATIENT
  Age: 57 Year
  Sex: Male
  Weight: 76.7 kg

DRUGS (17)
  1. PLATELETS [Concomitant]
     Active Substance: HUMAN PLATELET, ALLOGENIC
     Indication: SUBDURAL HAEMATOMA
     Dosage: UNK
     Route: 065
     Dates: start: 20180202, end: 20180206
  2. BORTEZOMIB. [Suspect]
     Active Substance: BORTEZOMIB
     Dosage: 1.3 MILLIGRAM/SQ. METER, QD
     Route: 065
     Dates: start: 20180119, end: 20180119
  3. DEXAMETHASONE. [Concomitant]
     Active Substance: DEXAMETHASONE
     Dosage: 20 MILLIGRAM, QD
     Route: 065
     Dates: start: 20180119, end: 20180120
  4. E KEPPRA [Concomitant]
     Active Substance: LEVETIRACETAM
     Indication: SUBDURAL HAEMATOMA
     Dosage: 500 MILLIGRAM, QD
     Route: 065
     Dates: start: 20180202, end: 20180202
  5. DARZALEX [Suspect]
     Active Substance: DARATUMUMAB
     Indication: PLASMA CELL MYELOMA
     Dosage: 16 MILLIGRAM/KILOGRAM, QD
     Route: 041
     Dates: start: 20180109, end: 20180109
  6. DEXAMETHASONE. [Concomitant]
     Active Substance: DEXAMETHASONE
     Indication: PLASMA CELL MYELOMA
     Dosage: 20 MILLIGRAM, QD
     Route: 065
     Dates: start: 20180109, end: 20180110
  7. BORTEZOMIB. [Suspect]
     Active Substance: BORTEZOMIB
     Dosage: 1.3 MILLIGRAM/SQ. METER, QD
     Route: 065
     Dates: start: 20180112, end: 20180112
  8. DARZALEX [Suspect]
     Active Substance: DARATUMUMAB
     Dosage: 16 MILLIGRAM/KILOGRAM, QD
     Route: 041
     Dates: start: 20180116, end: 20180116
  9. DEXAMETHASONE. [Concomitant]
     Active Substance: DEXAMETHASONE
     Dosage: 20 MILLIGRAM, QD
     Route: 065
     Dates: start: 20180112, end: 20180113
  10. MIDAZOLAM. [Concomitant]
     Active Substance: MIDAZOLAM
     Indication: SUBDURAL HAEMATOMA
     Dosage: UNK
     Route: 065
     Dates: start: 20180202, end: 20180206
  11. BORTEZOMIB. [Suspect]
     Active Substance: BORTEZOMIB
     Dosage: 1.3 MILLIGRAM/SQ. METER, QD
     Route: 065
     Dates: start: 20180116, end: 20180116
  12. DEXAMETHASONE. [Concomitant]
     Active Substance: DEXAMETHASONE
     Dosage: 20 MILLIGRAM, QD
     Route: 065
     Dates: start: 20180116, end: 20180116
  13. OXYCODONE [Concomitant]
     Active Substance: OXYCODONE
     Indication: PLASMA CELL MYELOMA
     Dosage: UNK
     Route: 065
     Dates: end: 20180201
  14. HORIZON [Concomitant]
     Active Substance: DIAZEPAM
     Indication: SUBDURAL HAEMATOMA
     Dosage: UNK UNK, QD
     Route: 065
     Dates: start: 20180202, end: 20180202
  15. BORTEZOMIB. [Suspect]
     Active Substance: BORTEZOMIB
     Indication: PLASMA CELL MYELOMA
     Dosage: 1.3 MILLIGRAM/SQ. METER, QD
     Route: 065
     Dates: start: 20180109, end: 20180109
  16. DARZALEX [Suspect]
     Active Substance: DARATUMUMAB
     Dosage: 16 MILLIGRAM/KILOGRAM, QD
     Route: 041
     Dates: start: 20180123, end: 20180123
  17. DEXAMETHASONE. [Concomitant]
     Active Substance: DEXAMETHASONE
     Dosage: 20 MILLIGRAM, QD
     Route: 065
     Dates: start: 20180123, end: 20180123

REACTIONS (1)
  - Subdural haematoma [Fatal]

NARRATIVE: CASE EVENT DATE: 20180202
